FAERS Safety Report 8152626-X (Version None)
Quarter: 2012Q1

REPORT INFORMATION
  Report Type: 
  Country: None (occurrence: None)
  Receive Date: 20120221
  Receipt Date: 20120208
  Transmission Date: 20120608
  Serious: Yes (Hospitalization, Other)
  Sender: FDA-Public Use
  Company Number: JP-JNJFOC-20120105656

PATIENT
  Sex: Female

DRUGS (5)
  1. TOPIRAMATE [Suspect]
     Indication: EPILEPSY
     Route: 048
     Dates: start: 20100101
  2. FOLIC ACID [Concomitant]
     Route: 065
     Dates: end: 20111218
  3. NATEGLINIDE [Concomitant]
     Indication: DIABETES MELLITUS
     Route: 065
     Dates: start: 20110101, end: 20110512
  4. INSULIN [Concomitant]
     Indication: DIABETES MELLITUS
     Route: 065
     Dates: start: 20110808
  5. DEPAKENE [Suspect]
     Indication: EPILEPSY
     Route: 065

REACTIONS (2)
  - MATERNAL EXPOSURE DURING PREGNANCY [None]
  - POLYHYDRAMNIOS [None]
